FAERS Safety Report 11496891 (Version 1)
Quarter: 2015Q3

REPORT INFORMATION
  Report Type: Spontaneous
  Country: FR (occurrence: FR)
  Receive Date: 20150911
  Receipt Date: 20150911
  Transmission Date: 20151125
  Serious: Yes (Other)
  Sender: FDA-Public Use
  Company Number: FR-AMGEN-FRASP2015092019

PATIENT
  Age: 6 Year
  Sex: Female
  Weight: 19.3 kg

DRUGS (4)
  1. BACTRIM [Concomitant]
     Active Substance: SULFAMETHOXAZOLE\TRIMETHOPRIM
  2. DIFFU K [Concomitant]
     Active Substance: POTASSIUM CHLORIDE
  3. BLINCYTO [Suspect]
     Active Substance: BLINATUMOMAB
     Indication: ACUTE LYMPHOCYTIC LEUKAEMIA
     Dosage: 15 MUG, QD
     Route: 042
     Dates: start: 20150505, end: 20150601
  4. CYAMEMAZINE [Concomitant]
     Active Substance: CYAMEMAZINE

REACTIONS (1)
  - Blister [Recovered/Resolved]

NARRATIVE: CASE EVENT DATE: 20150528
